FAERS Safety Report 4602419-2 (Version None)
Quarter: 2005Q1

REPORT INFORMATION
  Report Type: 
  Country: None (occurrence: None)
  Receive Date: 20050309
  Receipt Date: 20041228
  Transmission Date: 20050727
  Serious: No
  Sender: FDA-Public Use
  Company Number: PHRM2004FR03804

PATIENT
  Age: 33 Year
  Sex: Female
  Weight: 57 kg

DRUGS (2)
  1. TEGRETOL [Concomitant]
     Indication: TEMPORAL LOBE EPILEPSY
     Dosage: 600 MG/DAY
     Route: 048
     Dates: start: 19830101
  2. LAMISIL [Suspect]
     Indication: NAIL TINEA
     Dosage: 250 MG, QD
     Route: 048
     Dates: start: 20041219, end: 20041222

REACTIONS (2)
  - DYSPNOEA [None]
  - TRACHEAL OEDEMA [None]
